FAERS Safety Report 7944472-4 (Version None)
Quarter: 2011Q4

REPORT INFORMATION
  Report Type: 
  Country: None (occurrence: None)
  Receive Date: 20111129
  Receipt Date: 20111116
  Transmission Date: 20120403
  Serious: Yes (Other)
  Sender: FDA-Public Use
  Company Number: TR-RANBAXY-2011RR-50539

PATIENT
  Age: 34 Year
  Sex: Female

DRUGS (1)
  1. SUMATRIPTAN [Suspect]
     Indication: HEADACHE
     Dosage: UNK
     Route: 065

REACTIONS (2)
  - BRAIN STEM INFARCTION [None]
  - BASILAR ARTERY OCCLUSION [None]
